FAERS Safety Report 9306834 (Version 1)
Quarter: 2013Q2

REPORT INFORMATION
  Report Type: Spontaneous
  Country: US (occurrence: US)
  Receive Date: 20130523
  Receipt Date: 20130523
  Transmission Date: 20140414
  Serious: Yes (Other)
  Sender: FDA-Public Use
  Company Number: US-BAYER-2013-061797

PATIENT
  Sex: Female
  Weight: 68.03 kg

DRUGS (2)
  1. ALEVE CAPLET [Suspect]
     Route: 048
  2. BAYER GENUINE ASPIRIN ORIGINAL STRENGTH [Suspect]
     Dosage: 2 DF, PRN
     Route: 048

REACTIONS (3)
  - Asthenia [None]
  - Asthenia [None]
  - Drug ineffective [None]
